FAERS Safety Report 8695550 (Version 3)
Quarter: 2013Q2

REPORT INFORMATION
  Report Type: Report from Study
  Country: FR (occurrence: FR)
  Receive Date: 20120731
  Receipt Date: 20130520
  Transmission Date: 20140414
  Serious: Yes (Life-Threatening, Hospitalization)
  Sender: FDA-Public Use
  Company Number: FR-PFIZER INC-2012179511

PATIENT
  Age: 48 Year
  Sex: Female
  Weight: 55 kg

DRUGS (10)
  1. AXITINIB [Suspect]
     Indication: NEOPLASM MALIGNANT
     Dosage: 5 MG, 2X/DAY
     Route: 048
     Dates: start: 20120510, end: 20120723
  2. SKENAN [Concomitant]
     Indication: ABDOMINAL PAIN
     Dosage: 30 MG, 2X/DAY
     Route: 048
     Dates: start: 20120709, end: 20120722
  3. SKENAN [Concomitant]
     Dosage: 20 MG, 2X/DAY
     Route: 048
     Dates: start: 20120723
  4. MYOLASTAN [Concomitant]
     Indication: INTERVERTEBRAL DISC PROTRUSION
     Dosage: 1 DF, 1X/DAY
     Route: 048
     Dates: start: 1997
  5. HEXAQUINE [Concomitant]
     Indication: MUSCLE SPASMS
     Dosage: AS NEEDED
     Route: 048
     Dates: start: 201110
  6. MAGNESIUM W/VITAMIN B6 [Concomitant]
     Indication: MUSCLE SPASMS
     Dosage: 2 DF, 1X/DAY
     Route: 048
     Dates: start: 2010
  7. PRIMPERAN [Concomitant]
     Indication: NAUSEA
     Dosage: AS NEEDED
     Route: 048
     Dates: start: 201206
  8. PRIMPERAN [Concomitant]
     Indication: VOMITING
  9. STEDIRIL [Concomitant]
     Indication: CONTRACEPTION
     Dosage: 1 DF, 1X/DAY
     Route: 048
     Dates: start: 1992
  10. ATARAX [Concomitant]
     Indication: INSOMNIA
     Dosage: 1 DF, AS NEEDED
     Route: 048
     Dates: start: 201205

REACTIONS (1)
  - Acute myocardial infarction [Recovered/Resolved]
